FAERS Safety Report 11688429 (Version 2)
Quarter: 2015Q4

REPORT INFORMATION
  Report Type: Spontaneous
  Country: JP (occurrence: JP)
  Receive Date: 20151101
  Receipt Date: 20151113
  Transmission Date: 20160304
  Serious: Yes (Hospitalization, Other)
  Sender: FDA-Public Use
  Company Number: JP-TEVA-605558ISR

PATIENT
  Age: 58 Year
  Sex: Male

DRUGS (4)
  1. CISPLATIN. [Suspect]
     Active Substance: CISPLATIN
     Indication: LYMPHADENOPATHY
     Dosage: 70 MG/M2 DAILY; ON DAY 1 TO 4, DAY 29
     Route: 065
  2. CISPLATIN. [Suspect]
     Active Substance: CISPLATIN
     Indication: OESOPHAGEAL CARCINOMA
  3. FLUOROURACIL. [Suspect]
     Active Substance: FLUOROURACIL
     Indication: OESOPHAGEAL CARCINOMA
  4. FLUOROURACIL. [Suspect]
     Active Substance: FLUOROURACIL
     Indication: LYMPHADENOPATHY
     Dosage: 700 MG/M2 DAILY; ON DAY 1-4, DAY 29-32
     Route: 065

REACTIONS (2)
  - Anaemia [Recovered/Resolved]
  - Gastric haemorrhage [Recovered/Resolved]
